FAERS Safety Report 11255892 (Version 2)
Quarter: 2015Q4

REPORT INFORMATION
  Report Type: Spontaneous
  Country: DE (occurrence: DE)
  Receive Date: 20150709
  Receipt Date: 20151009
  Transmission Date: 20160304
  Serious: Yes (Hospitalization)
  Sender: FDA-Public Use
  Company Number: DE-TEVA-575703GER

PATIENT
  Age: 70 Year
  Sex: Male
  Weight: 80 kg

DRUGS (1)
  1. CLOPIDOGREL [Suspect]
     Active Substance: CLOPIDOGREL BISULFATE
     Indication: HAEMODILUTION
     Dosage: 75 MILLIGRAM DAILY; IN THE MORNING
     Route: 048

REACTIONS (5)
  - Inguinal hernia [Not Recovered/Not Resolved]
  - Product substitution issue [Unknown]
  - Faecal volume increased [Not Recovered/Not Resolved]
  - Flatulence [Not Recovered/Not Resolved]
  - Intestinal dilatation [Not Recovered/Not Resolved]

NARRATIVE: CASE EVENT DATE: 20150612
